FAERS Safety Report 16790271 (Version 1)
Quarter: 2019Q3

REPORT INFORMATION
  Report Type: Spontaneous
  Country: US (occurrence: US)
  Receive Date: 20190909
  Receipt Date: 20190909
  Transmission Date: 20191005
  Serious: Yes (Other)
  Sender: FDA-Public Use
  Company Number: None

PATIENT
  Age: 58 Year
  Sex: Male
  Weight: 138.15 kg

DRUGS (1)
  1. LOSARTAN. [Suspect]
     Active Substance: LOSARTAN
     Indication: HYPERTENSION
     Route: 048
     Dates: start: 20190102, end: 20190822

REACTIONS (4)
  - Diarrhoea [None]
  - Product substitution issue [None]
  - Blood pressure increased [None]
  - Abdominal pain [None]

NARRATIVE: CASE EVENT DATE: 20190823
